FAERS Safety Report 5352236-3 (Version None)
Quarter: 2007Q2

REPORT INFORMATION
  Report Type: 
  Country: None (occurrence: None)
  Receive Date: 20070607
  Receipt Date: 20070530
  Transmission Date: 20071010
  Serious: Yes (Hospitalization)
  Sender: FDA-Public Use
  Company Number: JPI-P-001475

PATIENT
  Age: 72 Year
  Sex: Female
  Weight: 80.7403 kg

DRUGS (3)
  1. XYREM [Suspect]
     Indication: CATAPLEXY
     Dosage: 4.5 GM (2.25 GM, 2 IN 1 D), ORAL
     Route: 048
     Dates: start: 20070401
  2. THYROID MEDICINE (THYROID THERAPY) [Concomitant]
  3. CHOLESTEROL MEDICINE (OTHER CHOLESTEROL AND TRIGLYCERIDE REDUCERS) [Concomitant]

REACTIONS (5)
  - BLOOD CREATININE ABNORMAL [None]
  - DRY MOUTH [None]
  - HYPERTENSION [None]
  - SINUSITIS [None]
  - STOMACH DISCOMFORT [None]
